FAERS Safety Report 9744060 (Version 1)
Quarter: 2013Q4

REPORT INFORMATION
  Report Type: Spontaneous
  Country: US (occurrence: US)
  Receive Date: 20131210
  Receipt Date: 20131210
  Transmission Date: 20140711
  Serious: Yes (Death)
  Sender: FDA-Public Use
  Company Number: US-PFIZER INC-2013349584

PATIENT
  Sex: Male

DRUGS (1)
  1. VFEND [Suspect]
     Dosage: UNK

REACTIONS (1)
  - Mycobacterium abscessus infection [Fatal]
